FAERS Safety Report 18463770 (Version 2)
Quarter: 2020Q4

REPORT INFORMATION
  Report Type: Spontaneous
  Country: US (occurrence: US)
  Receive Date: 20201104
  Receipt Date: 20201123
  Transmission Date: 20210114
  Serious: Yes (Other)
  Sender: FDA-Public Use
  Company Number: US-INTRA-CELLULAR THERAPIES, INC.-2020ICT00198

PATIENT
  Age: 19 Year
  Sex: Male
  Weight: 66.21 kg

DRUGS (3)
  1. CAPLYTA [Suspect]
     Active Substance: LUMATEPERONE
     Indication: HALLUCINATION, AUDITORY
     Dosage: 42 MG, 1X/DAY IN THE EVENING
     Route: 048
     Dates: start: 20201019, end: 20201021
  2. CAPLYTA [Suspect]
     Active Substance: LUMATEPERONE
     Indication: HALLUCINATION
  3. CAPLYTA [Suspect]
     Active Substance: LUMATEPERONE
     Indication: PSYCHOTIC DISORDER

REACTIONS (2)
  - Hypotension [Recovered/Resolved]
  - Loss of consciousness [Recovered/Resolved]

NARRATIVE: CASE EVENT DATE: 20201021
